FAERS Safety Report 12119480 (Version 2)
Quarter: 2016Q3

REPORT INFORMATION
  Report Type: Report from Study
  Country: DE (occurrence: DE)
  Receive Date: 20160226
  Receipt Date: 20160719
  Transmission Date: 20161109
  Serious: Yes (Other)
  Sender: FDA-Public Use
  Company Number: DE-BAYER-2015-480357

PATIENT
  Age: 48 Year
  Sex: Female
  Weight: 63 kg

DRUGS (2)
  1. CORTISONE [Concomitant]
     Active Substance: CORTISONE\HYDROCORTISONE
  2. BETAFERON [Suspect]
     Active Substance: INTERFERON BETA-1B
     Indication: MULTIPLE SCLEROSIS
     Dosage: 250 ?G, QOD
     Route: 058
     Dates: start: 20060901

REACTIONS (16)
  - Gingivitis [Recovered/Resolved]
  - Gingival bleeding [None]
  - Mood swings [Recovering/Resolving]
  - Gingivitis [Not Recovered/Not Resolved]
  - Fine motor skill dysfunction [None]
  - Multiple sclerosis relapse [Recovering/Resolving]
  - Balance disorder [Recovering/Resolving]
  - Stomatitis [Not Recovered/Not Resolved]
  - Hypoaesthesia [Recovering/Resolving]
  - Limb discomfort [Recovering/Resolving]
  - Hemianaesthesia [Recovering/Resolving]
  - Cardiovascular disorder [None]
  - Mood altered [Recovered/Resolved]
  - Fall [Unknown]
  - Dizziness [Recovering/Resolving]
  - Intervertebral disc protrusion [Unknown]

NARRATIVE: CASE EVENT DATE: 20151014
